FAERS Safety Report 24668273 (Version 2)
Quarter: 2025Q1

REPORT INFORMATION
  Report Type: Spontaneous
  Country: JP (occurrence: JP)
  Receive Date: 20241127
  Receipt Date: 20250325
  Transmission Date: 20250408
  Serious: Yes (Other)
  Sender: CHEPLAPHARM
  Company Number: JP-CHEPLA-2024014627

PATIENT
  Age: 50 Year
  Sex: Male
  Weight: 80.699 kg

DRUGS (20)
  1. GANCICLOVIR [Suspect]
     Active Substance: GANCICLOVIR
     Indication: Cytomegalovirus enterocolitis
     Dosage: ROA: IV DRIP?DAILY DOSE: 125 MILLIGRAM
     Route: 042
     Dates: start: 20240731, end: 20240808
  2. CEFTAZIDIME [Suspect]
     Active Substance: CEFTAZIDIME
     Indication: Pseudomonal sepsis
     Route: 042
     Dates: start: 20240718
  3. CEFTAZIDIME [Suspect]
     Active Substance: CEFTAZIDIME
     Indication: Bacterial sepsis
     Route: 042
     Dates: start: 20240718
  4. CEFTAZIDIME [Suspect]
     Active Substance: CEFTAZIDIME
     Indication: Pseudomonal sepsis
     Dosage: DAILY DOSE: 2 GRAM
     Route: 042
     Dates: start: 20240726, end: 20240806
  5. CEFTAZIDIME [Suspect]
     Active Substance: CEFTAZIDIME
     Indication: Bacterial sepsis
     Dosage: DAILY DOSE: 2 GRAM
     Route: 042
     Dates: start: 20240726, end: 20240806
  6. DEXTROSE\SODIUM CHLORIDE\SODIUM LACTATE [Concomitant]
     Active Substance: DEXTROSE\SODIUM CHLORIDE\SODIUM LACTATE
     Dates: start: 20240624, end: 20240921
  7. CALCIUM GLUCONATE\DEXTROSE\MAGNESIUM SULFATE\POTASSIUM ACETATE\POTASSI [Concomitant]
     Active Substance: CALCIUM GLUCONATE\DEXTROSE\MAGNESIUM SULFATE\POTASSIUM ACETATE\POTASSIUM PHOSPHATE, DIBASIC\ZINC SUL
     Dates: start: 20240705, end: 20240821
  8. Amizet-b [Concomitant]
     Dates: start: 20240705, end: 20240821
  9. VITAMINS [Concomitant]
     Active Substance: VITAMINS
     Dates: start: 20240705, end: 20240821
  10. CUPRIC SULFATE\FERRIC CHLORIDE\MANGANESE CHLORIDE\POTASSIUM IODIDE\ZIN [Concomitant]
     Active Substance: CUPRIC SULFATE\FERRIC CHLORIDE\MANGANESE CHLORIDE\POTASSIUM IODIDE\ZINC SULFATE
     Dates: start: 20240705, end: 20240821
  11. HERBALS [Concomitant]
     Active Substance: HERBALS
     Dates: start: 20240726
  12. HERBAL NOS [Concomitant]
     Active Substance: HERBALS
     Dates: start: 20240727, end: 20241001
  13. MIYA-BM [Concomitant]
     Active Substance: CLOSTRIDIUM BUTYRICUM SPORES STRAIN M-55
     Dates: start: 20240727
  14. LANSOPRAZOLE [Concomitant]
     Active Substance: LANSOPRAZOLE
     Dates: start: 20240731, end: 20241015
  15. MICAFUNGIN SODIUM [Concomitant]
     Active Substance: MICAFUNGIN SODIUM
     Dates: start: 20240802, end: 20240826
  16. AMBISOME [Concomitant]
     Active Substance: AMPHOTERICIN B
     Dates: start: 20240803, end: 20240917
  17. HEPARIN SODIUM [Concomitant]
     Active Substance: HEPARIN SODIUM
     Dates: start: 20240803, end: 20240921
  18. METOCLOPRAMIDE [Concomitant]
     Active Substance: METOCLOPRAMIDE
     Dates: start: 20240806, end: 20241004
  19. PIPERACILLIN SODIUM\TAZOBACTAM SODIUM [Concomitant]
     Active Substance: PIPERACILLIN SODIUM\TAZOBACTAM SODIUM
     Dates: start: 20240806, end: 20240817
  20. MOSAPRIDE CITRATE [Concomitant]
     Active Substance: MOSAPRIDE CITRATE
     Dates: start: 20240806, end: 20241008

REACTIONS (2)
  - Toxic encephalopathy [Recovered/Resolved]
  - Off label use [Unknown]

NARRATIVE: CASE EVENT DATE: 20240806
